FAERS Safety Report 14353698 (Version 2)
Quarter: 2018Q1

REPORT INFORMATION
  Report Type: Spontaneous
  Country: GB (occurrence: GB)
  Receive Date: 20180105
  Receipt Date: 20180123
  Transmission Date: 20180509
  Serious: Yes (Hospitalization, Other)
  Sender: FDA-Public Use
  Company Number: GB-AXELLIA-001247

PATIENT
  Age: 59 Year
  Sex: Female
  Weight: 86 kg

DRUGS (40)
  1. VANCOMYCIN [Suspect]
     Active Substance: VANCOMYCIN
     Indication: PRODUCT USED FOR UNKNOWN INDICATION
     Dates: start: 20170804
  2. SERTRALINE [Concomitant]
     Active Substance: SERTRALINE HYDROCHLORIDE
     Dosage: EACH MORNING.
     Dates: start: 20170804
  3. TIOTROPIUM/TIOTROPIUM BROMIDE [Concomitant]
     Route: 055
     Dates: start: 20170228, end: 20170804
  4. SEVELAMER [Concomitant]
     Active Substance: SEVELAMER
     Dosage: DOSE 6 DF?2TDS
     Dates: start: 20170804
  5. LANSOPRAZOLE. [Concomitant]
     Active Substance: LANSOPRAZOLE
     Dates: start: 20170228
  6. CLOPIDOGREL [Concomitant]
     Active Substance: CLOPIDOGREL BISULFATE
     Dosage: EVERY MORNING.
     Dates: start: 20170804
  7. ALFACALCIDOL [Concomitant]
     Active Substance: ALFACALCIDOL
     Dates: start: 20170228
  8. ABASAGLAR [Concomitant]
     Active Substance: INSULIN GLARGINE
     Dosage: IN THE MORNING.
     Dates: start: 20170228
  9. ATORVASTATIN [Concomitant]
     Active Substance: ATORVASTATIN
     Dates: start: 20170228
  10. BISOPROLOL [Concomitant]
     Active Substance: BISOPROLOL
     Dates: start: 20170228
  11. PREGABALIN. [Concomitant]
     Active Substance: PREGABALIN
     Dosage: AT NIGHT.
     Dates: start: 20170804
  12. DOCUSATE [Concomitant]
     Active Substance: DOCUSATE
     Dates: start: 20170804
  13. FOLIC ACID. [Concomitant]
     Active Substance: FOLIC ACID
     Dates: start: 20170228
  14. LAXIDO [Concomitant]
     Active Substance: POLYETHYLENE GLYCOL 3350\POTASSIUM CHLORIDE\SODIUM BICARBONATE\SODIUM CHLORIDE
     Dosage: DOSE 2 DF?TAKE ONE TWICE A DAY
     Dates: start: 20170804
  15. ALPHOSYL [Concomitant]
     Dates: start: 20170228, end: 20170804
  16. CASSIA [Concomitant]
     Dates: start: 20170228
  17. HYDROXYCARBAMIDE [Concomitant]
     Active Substance: HYDROXYUREA
     Dates: start: 20170228, end: 20170804
  18. CHEMYDUR XL [Concomitant]
     Dosage: IN THE MORNING.
     Dates: start: 20170228, end: 20170804
  19. BRALTUS [Concomitant]
     Route: 055
     Dates: start: 20170804
  20. TORASEMIDE [Concomitant]
     Active Substance: TORSEMIDE
     Dosage: IN THE MORNING.
     Dates: start: 20170228, end: 20170804
  21. GLYCERYL TRINITRATE [Concomitant]
     Active Substance: NITROGLYCERIN
     Dosage: SPRAY ONE PUFF UNDER THE TONGUE WHEN REQUIRED
     Route: 060
     Dates: start: 20170804
  22. SODIUM BICARBONATE. [Concomitant]
     Active Substance: SODIUM BICARBONATE
     Dates: start: 20170228, end: 20170804
  23. LACTULOSE. [Concomitant]
     Active Substance: LACTULOSE
     Dates: start: 20170801
  24. NEORECORMON [Concomitant]
     Active Substance: ERYTHROPOIETIN
     Dosage: TUESDAY/THURSDAY/SATURDAY WITH DIALYSIS
     Dates: start: 20170804
  25. AMLODIPINE [Concomitant]
     Active Substance: AMLODIPINE BESYLATE
     Dates: start: 20170228
  26. FENTANYL. [Concomitant]
     Active Substance: FENTANYL
     Dosage: PATCH
     Dates: start: 20170804
  27. AZATHIOPRINE. [Concomitant]
     Active Substance: AZATHIOPRINE
     Dates: start: 20170228, end: 20170804
  28. AMITRIPTYLINE [Concomitant]
     Active Substance: AMITRIPTYLINE
     Dosage: AT NIGHT.
     Dates: start: 20170228, end: 20170804
  29. CALCICHEW [Concomitant]
     Active Substance: CALCIUM CARBONATE
     Dates: start: 20170228, end: 20170804
  30. ACIDEX [Concomitant]
     Active Substance: CALCIUM CARBONATE\SODIUM ALGINATE\SODIUM BICARBONATE
     Dates: start: 20170804
  31. IRBESARTAN. [Concomitant]
     Active Substance: IRBESARTAN
     Dates: start: 20170228
  32. DOXAZOSIN [Concomitant]
     Active Substance: DOXAZOSIN\DOXAZOSIN MESYLATE
     Dates: start: 20170228
  33. FOSTAIR [Concomitant]
     Active Substance: BECLOMETHASONE\FORMOTEROL
     Dates: start: 20170228
  34. PARACETAMOL [Concomitant]
     Active Substance: ACETAMINOPHEN
     Dosage: TAKE 1 OR 2 4 TIMES/DAY WHEN REQUIRED
     Dates: start: 20170228
  35. HYDRALAZINE [Concomitant]
     Active Substance: HYDRALAZINE HYDROCHLORIDE
     Dates: start: 20170228
  36. HUMALOG [Concomitant]
     Active Substance: INSULIN LISPRO
     Dosage: 14 UNITS WITH LUNCH AND 14 UNITS WITH DINNER
     Dates: start: 20170228, end: 20170804
  37. CETOMACROGOL 1000 [Concomitant]
     Dosage: APPLY AS DIRECTED
     Dates: start: 20170804
  38. CIPROFLOXACIN. [Suspect]
     Active Substance: CIPROFLOXACIN
     Indication: PRODUCT USED FOR UNKNOWN INDICATION
     Dates: start: 20170804
  39. CLOBETASOL [Concomitant]
     Active Substance: CLOBETASOL
     Dates: start: 20140213, end: 20170804
  40. WARFARIN [Concomitant]
     Active Substance: WARFARIN
     Dosage: TAKE AS DIRECTED IN YELLOW BOOK
     Dates: start: 20170228, end: 20170804

REACTIONS (1)
  - Dermatitis bullous [Recovered/Resolved]

NARRATIVE: CASE EVENT DATE: 20170804
